FAERS Safety Report 4358459-4 (Version None)
Quarter: 2004Q2

REPORT INFORMATION
  Report Type: 
  Country: None (occurrence: None)
  Receive Date: 20040511
  Receipt Date: 20040429
  Transmission Date: 20050107
  Serious: Yes (Other)
  Sender: FDA-Public Use
  Company Number: US-JNJFOC-20040500143

PATIENT
  Age: 60 Year
  Sex: Female

DRUGS (5)
  1. ULTRAM [Suspect]
     Dosage: ORAL
     Route: 048
  2. LOMOTIL [Concomitant]
  3. FLAGYL [Concomitant]
  4. BENTYL [Concomitant]
  5. MACROBID [Concomitant]

REACTIONS (4)
  - COLON OPERATION [None]
  - DIARRHOEA [None]
  - POSTOPERATIVE INFECTION [None]
  - URINARY TRACT INFECTION [None]
